FAERS Safety Report 13429079 (Version 1)
Quarter: 2017Q2

REPORT INFORMATION
  Report Type: Spontaneous
  Country: None (occurrence: US)
  Receive Date: 20170411
  Receipt Date: 20170411
  Transmission Date: 20170830
  Serious: No
  Sender: FDA-Public Use
  Company Number: US-SEBELA IRELAND LIMITED-2017SEB00204

PATIENT
  Age: 75 Year
  Sex: Female

DRUGS (1)
  1. NAFTIN [Suspect]
     Active Substance: NAFTIFINE HYDROCHLORIDE
     Dosage: TOPICAL ONCE DAILY
     Dates: start: 20160715

REACTIONS (4)
  - Pruritus [Unknown]
  - Rash [Unknown]
  - Skin disorder [Unknown]
  - Blister [Unknown]
